FAERS Safety Report 7178968-2 (Version None)
Quarter: 2010Q4

REPORT INFORMATION
  Report Type: 
  Country: None (occurrence: None)
  Receive Date: 20101221
  Receipt Date: 20101207
  Transmission Date: 20110411
  Serious: Yes (Other)
  Sender: FDA-Public Use
  Company Number: PHHY2010RU83023

PATIENT
  Age: 68 Year
  Sex: Female

DRUGS (5)
  1. ACLASTA [Suspect]
     Indication: OSTEOPOROSIS
     Dosage: UNK
     Dates: start: 20100906
  2. PHYSIOTHERAPY [Concomitant]
  3. NOVOCAIN [Concomitant]
  4. DIMETHYL SULFOXIDE [Concomitant]
  5. TRENTAL [Concomitant]

REACTIONS (3)
  - ANKLE FRACTURE [None]
  - FALL [None]
  - IMPAIRED HEALING [None]
